FAERS Safety Report 8149145-3 (Version None)
Quarter: 2012Q1

REPORT INFORMATION
  Report Type: 
  Country: None (occurrence: None)
  Receive Date: 20120218
  Receipt Date: 20110901
  Transmission Date: 20120608
  Serious: Yes (Life-Threatening, Hospitalization)
  Sender: FDA-Public Use
  Company Number: US-ALLERGAN-1111740US

PATIENT
  Age: 44 Year
  Sex: Male

DRUGS (2)
  1. BOTULINUM TOXIN TYPE A [Suspect]
     Dosage: 400 UNK, UNK
     Dates: start: 20100920, end: 20100920
  2. BOTULINUM TOXIN TYPE A [Suspect]
     Indication: HEMIPLEGIA
     Dosage: 600 UNITS, SINGLE
     Dates: start: 20110131, end: 20110131

REACTIONS (1)
  - CONVULSION [None]
